FAERS Safety Report 9365053 (Version 1)
Quarter: 2013Q2

REPORT INFORMATION
  Report Type: Spontaneous
  Country: CH (occurrence: CH)
  Receive Date: 20130624
  Receipt Date: 20130624
  Transmission Date: 20140414
  Serious: Yes (Disabling)
  Sender: FDA-Public Use
  Company Number: CH-PFIZER INC-2013184478

PATIENT
  Age: 45 Year
  Sex: Male

DRUGS (3)
  1. SORTIS [Suspect]
     Indication: HYPERCHOLESTEROLAEMIA
     Dosage: 80 MG, 1X/DAY
     Route: 048
     Dates: start: 201211, end: 20130409
  2. ASPIRIN CARDIO [Concomitant]
     Dosage: 100 MG, 1X/DAY
  3. RASILEZ [Concomitant]
     Indication: ESSENTIAL HYPERTENSION
     Dosage: UNK

REACTIONS (2)
  - Erectile dysfunction [Recovered/Resolved]
  - Libido decreased [Recovered/Resolved]
